FAERS Safety Report 8862552 (Version 1)
Quarter: 2012Q4

REPORT INFORMATION
  Report Type: 
  Country: IT (occurrence: IT)
  Receive Date: 20121026
  Receipt Date: 20121026
  Transmission Date: 20130627
  Serious: Yes (Hospitalization)
  Sender: FDA-Public Use
  Company Number: IT-PFIZER INC-2012264645

PATIENT
  Age: 30 Year
  Sex: Male

DRUGS (1)
  1. FLUCONAZOLE [Suspect]
     Indication: FUNGAL SKIN INFECTION
     Dosage: 1 DF, daily
     Route: 048
     Dates: start: 20120926, end: 20120927

REACTIONS (2)
  - Lip oedema [Recovering/Resolving]
  - Tongue oedema [Recovering/Resolving]
